FAERS Safety Report 8475108 (Version 13)
Quarter: 2013Q4

REPORT INFORMATION
  Report Type: Spontaneous
  Country: US (occurrence: US)
  Receive Date: 20120323
  Receipt Date: 20131220
  Transmission Date: 20140711
  Serious: Yes (Hospitalization, Disabling, Other)
  Sender: FDA-Public Use
  Company Number: US-009507513-1111USA02477

PATIENT
  Sex: Female
  Weight: 79.38 kg

DRUGS (6)
  1. FOSAMAX [Suspect]
     Indication: OSTEOPOROSIS
     Dosage: 70 MG, QW
     Route: 048
     Dates: start: 20030626
  2. FOSAMAX [Suspect]
     Indication: OSTEOPENIA
     Dosage: 70 MG, UNK
     Route: 048
     Dates: start: 20070419, end: 20080102
  3. ALENDRONATE SODIUM [Suspect]
     Dosage: 70 MG, QW
     Route: 048
     Dates: start: 20080505
  4. BONIVA [Suspect]
     Indication: OSTEOPOROSIS
     Dosage: 150 MG, UNK
     Route: 048
     Dates: start: 20050907, end: 20070118
  5. VIVELLE (ESTRADIOL) [Concomitant]
     Indication: HORMONE REPLACEMENT THERAPY
     Dosage: UNK UNK, BIW
  6. OMEPRAZOLE [Concomitant]
     Dosage: UNK
     Dates: start: 1998, end: 2006

REACTIONS (72)
  - Intervertebral disc protrusion [Unknown]
  - Femur fracture [Unknown]
  - Adverse event [Unknown]
  - Open reduction of fracture [Unknown]
  - Surgery [Unknown]
  - Fall [Unknown]
  - Back disorder [Unknown]
  - Spinal laminectomy [Unknown]
  - Cholecystectomy [Unknown]
  - Femur fracture [Not Recovered/Not Resolved]
  - Low turnover osteopathy [Not Recovered/Not Resolved]
  - Osteomyelitis [Unknown]
  - Osteonecrosis of jaw [Not Recovered/Not Resolved]
  - Tooth disorder [Unknown]
  - Tooth disorder [Unknown]
  - Hypoaesthesia oral [Unknown]
  - Tooth disorder [Unknown]
  - Skin disorder [Unknown]
  - Adenoidal disorder [Unknown]
  - Chest discomfort [Unknown]
  - Pineal gland cyst [Unknown]
  - Bursitis [Unknown]
  - Osteoarthritis [Unknown]
  - Weight decreased [Unknown]
  - Laceration [Unknown]
  - Vitamin B12 deficiency [Unknown]
  - Body height decreased [Unknown]
  - Arthritis [Unknown]
  - Fatigue [Unknown]
  - Colon adenoma [Unknown]
  - Anaemia [Unknown]
  - Haematochezia [Unknown]
  - Hyperparathyroidism [Unknown]
  - Weight increased [Unknown]
  - Salivary gland mass [Unknown]
  - Impaired healing [Unknown]
  - Impaired healing [Unknown]
  - Temporomandibular joint syndrome [Unknown]
  - Abscess [Unknown]
  - Fistula discharge [Unknown]
  - Hypoaesthesia [Unknown]
  - Paraesthesia [Unknown]
  - Carpal tunnel syndrome [Unknown]
  - Otitis media [Unknown]
  - Excoriation [Unknown]
  - Hypertension [Unknown]
  - Hyperlipidaemia [Unknown]
  - Sjogren^s syndrome [Unknown]
  - Bronchitis chronic [Unknown]
  - Tooth abscess [Unknown]
  - Tooth disorder [Unknown]
  - Tooth disorder [Unknown]
  - Tooth disorder [Unknown]
  - Tooth disorder [Unknown]
  - Tooth disorder [Unknown]
  - Accident at home [Unknown]
  - Gastritis haemorrhagic [Unknown]
  - Gastric polyps [Unknown]
  - Duodenitis [Unknown]
  - Hiatus hernia [Unknown]
  - Acquired oesophageal web [Unknown]
  - Endodontic procedure [Unknown]
  - Spinal osteoarthritis [Unknown]
  - Renal stone removal [Unknown]
  - Pyrexia [Unknown]
  - Headache [Unknown]
  - Dizziness [Unknown]
  - Arthralgia [Unknown]
  - Constipation [Unknown]
  - Vertigo [Unknown]
  - Gastritis [Unknown]
  - Oesophagitis [Unknown]
